FAERS Safety Report 9120112 (Version 1)
Quarter: 2013Q1

REPORT INFORMATION
  Report Type: Spontaneous
  Country: US (occurrence: US)
  Receive Date: 20130226
  Receipt Date: 20130226
  Transmission Date: 20140127
  Serious: Yes (Death, Life-Threatening, Hospitalization)
  Sender: FDA-Public Use
  Company Number: US-JNJFOC-20130207416

PATIENT
  Sex: Male
  Weight: 83.73 kg

DRUGS (1)
  1. ZYTIGA [Suspect]
     Indication: PROSTATE CANCER
     Dosage: 250 MG X 4 = 1000 MG??NDC#: 57894-0150-12
     Route: 048
     Dates: start: 20120706

REACTIONS (1)
  - Cerebral thrombosis [Fatal]
